FAERS Safety Report 10546919 (Version 1)
Quarter: 2014Q4

REPORT INFORMATION
  Report Type: Spontaneous
  Country: US (occurrence: US)
  Receive Date: 20141027
  Receipt Date: 20141027
  Transmission Date: 20150529
  Serious: No
  Sender: FDA-Public Use
  Company Number: US-ABBVIE-14P-163-1252007-00

PATIENT
  Sex: Female
  Weight: 61.29 kg

DRUGS (2)
  1. LUPRON DEPOT [Suspect]
     Active Substance: LEUPROLIDE ACETATE
     Indication: ENDOMETRIOSIS
     Route: 030
     Dates: start: 201403, end: 201403
  2. LUPRON DEPOT [Suspect]
     Active Substance: LEUPROLIDE ACETATE
     Indication: ENDOMETRIOSIS
     Dosage: ONE DOSE
     Route: 030
     Dates: start: 201405

REACTIONS (3)
  - Blood oestrogen abnormal [Unknown]
  - Drug ineffective [Not Recovered/Not Resolved]
  - Ovarian cyst [Unknown]
